FAERS Safety Report 9642950 (Version 1)
Quarter: 2013Q4

REPORT INFORMATION
  Report Type: Spontaneous
  Country: US (occurrence: US)
  Receive Date: 20131024
  Receipt Date: 20131024
  Transmission Date: 20140711
  Serious: Yes (Other)
  Sender: FDA-Public Use
  Company Number: US-SA-2013SA105871

PATIENT
  Age: 77 Year
  Sex: Male

DRUGS (1)
  1. ALLEGRA [Suspect]
     Indication: HYPERSENSITIVITY
     Dosage: DAILY WHEN NEEDED
     Route: 048

REACTIONS (2)
  - Prostate cancer [Recovered/Resolved]
  - Metastases to lymph nodes [Recovered/Resolved]
